FAERS Safety Report 6988463-9 (Version None)
Quarter: 2010Q3

REPORT INFORMATION
  Report Type: 
  Country: None (occurrence: None)
  Receive Date: 20100916
  Receipt Date: 20100906
  Transmission Date: 20110219
  Serious: Yes (Other)
  Sender: FDA-Public Use
  Company Number: JP-AMGEN-US388233

PATIENT
  Sex: Female
  Weight: 52 kg

DRUGS (8)
  1. DENOSUMAB [Suspect]
     Indication: METASTASES TO BONE
     Dosage: DENOSUMAB 120MG S.C. OR ZOLEDRONIC ACID 4MG I.V.
     Route: 058
     Dates: start: 20090730, end: 20091218
  2. HERCEPTIN [Concomitant]
     Indication: BREAST CANCER
     Dosage: UNKNOWN
     Route: 041
     Dates: start: 20060609
  3. TYKERB [ INGREDIENT UNKNOWN ] [Concomitant]
     Indication: BREAST CANCER
     Route: 048
     Dates: start: 20100114
  4. NOVORAPID [Concomitant]
     Indication: DIABETES MELLITUS
     Dosage: 10-12U/ONCE
     Route: 058
     Dates: start: 20070407
  5. LANDSEN [Concomitant]
     Indication: NEUROPATHY PERIPHERAL
     Route: 048
     Dates: start: 20090226
  6. CALCICHEW D3 [Concomitant]
     Indication: MEDICAL DIET
     Dosage: CA:610MG,VITAMIND3:400IU
     Route: 048
     Dates: start: 20070607, end: 20100121
  7. NAVELBINE [Concomitant]
     Dates: start: 20090129, end: 20091126
  8. LOXONIN [Concomitant]
     Dates: start: 20090711, end: 20090717

REACTIONS (1)
  - OSTEONECROSIS [None]
